FAERS Safety Report 18740888 (Version 1)
Quarter: 2021Q1

REPORT INFORMATION
  Report Type: Report from Study
  Country: DE (occurrence: DE)
  Receive Date: 20210114
  Receipt Date: 20210114
  Transmission Date: 20210419
  Serious: Yes (Other)
  Sender: FDA-Public Use
  Company Number: DE-CELGENEUS-DEU-20201204647

PATIENT
  Age: 74 Year
  Sex: Female

DRUGS (13)
  1. LENALIDOMIDE [Suspect]
     Active Substance: LENALIDOMIDE
     Dosage: 20 MILLIGRAM
     Route: 048
  2. CYTARABINE. [Concomitant]
     Active Substance: CYTARABINE
     Indication: DIFFUSE LARGE B-CELL LYMPHOMA REFRACTORY
     Route: 065
     Dates: start: 201302, end: 201308
  3. ENOXAPARIN [Concomitant]
     Active Substance: ENOXAPARIN
     Indication: PROPHYLAXIS
     Dosage: 40 MILLIGRAM
     Route: 058
  4. LENALIDOMIDE [Suspect]
     Active Substance: LENALIDOMIDE
     Indication: DIFFUSE LARGE B-CELL LYMPHOMA REFRACTORY
     Route: 048
     Dates: start: 201302, end: 201308
  5. CYTARABINE. [Concomitant]
     Active Substance: CYTARABINE
     Dosage: 150 MILLIGRAM/SQ. METER
     Route: 041
  6. LEUCOVORIN. [Concomitant]
     Active Substance: LEUCOVORIN
     Dosage: 4X45 MG 24 HOURS AFTER METHOTREXATE
     Route: 048
  7. BENDAMUSTINE [Concomitant]
     Active Substance: BENDAMUSTINE
     Indication: DIFFUSE LARGE B-CELL LYMPHOMA REFRACTORY
     Route: 065
     Dates: start: 201405, end: 201410
  8. LENALIDOMIDE [Suspect]
     Active Substance: LENALIDOMIDE
     Dosage: 25 MILLIGRAM
     Route: 048
  9. METHOTREXATE. [Concomitant]
     Active Substance: METHOTREXATE
     Indication: DIFFUSE LARGE B-CELL LYMPHOMA REFRACTORY
     Route: 065
     Dates: start: 201302, end: 201308
  10. METHOTREXATE. [Concomitant]
     Active Substance: METHOTREXATE
     Dosage: 30 MILLIGRAM/SQ. METER
     Route: 041
  11. CYTARABINE. [Concomitant]
     Active Substance: CYTARABINE
     Dosage: 75 MILLIGRAM/SQ. METER
     Route: 041
  12. METHOTREXATE. [Concomitant]
     Active Substance: METHOTREXATE
     Dosage: 60 MILLIGRAM/SQ. METER
     Route: 041
  13. LEUCOVORIN. [Concomitant]
     Active Substance: LEUCOVORIN
     Indication: DIFFUSE LARGE B-CELL LYMPHOMA REFRACTORY
     Route: 065
     Dates: start: 201302, end: 201308

REACTIONS (1)
  - Oropharyngeal cancer [Recovered/Resolved]

NARRATIVE: CASE EVENT DATE: 201509
